FAERS Safety Report 9621419 (Version 2)
Quarter: 2013Q4

REPORT INFORMATION
  Report Type: Spontaneous
  Country: US (occurrence: US)
  Receive Date: 20131015
  Receipt Date: 20131203
  Transmission Date: 20140711
  Serious: No
  Sender: FDA-Public Use
  Company Number: US-PFIZER INC-2013291341

PATIENT
  Age: 54 Year
  Sex: Male
  Weight: 79.37 kg

DRUGS (1)
  1. ADVIL [Suspect]
     Dosage: UNK
     Route: 048

REACTIONS (4)
  - Poor quality drug administered [Unknown]
  - Drug ineffective [Unknown]
  - Product container issue [Unknown]
  - Product colour issue [Unknown]
